FAERS Safety Report 6298263-3 (Version None)
Quarter: 2009Q3

REPORT INFORMATION
  Report Type: 
  Country: None (occurrence: None)
  Receive Date: 20090805
  Receipt Date: 20090724
  Transmission Date: 20100115
  Serious: Yes (Other)
  Sender: FDA-Public Use
  Company Number: TH-PFIZER INC-2009249594

PATIENT
  Age: 73 Year

DRUGS (1)
  1. XANAX [Suspect]
     Indication: INSOMNIA
     Route: 048
     Dates: start: 20081008, end: 20081015

REACTIONS (2)
  - LETHARGY [None]
  - RENAL FAILURE ACUTE [None]
